FAERS Safety Report 11942006 (Version 3)
Quarter: 2016Q1

REPORT INFORMATION
  Report Type: Spontaneous
  Country: CZ (occurrence: CZ)
  Receive Date: 20160124
  Receipt Date: 20160204
  Transmission Date: 20160526
  Serious: Yes (Death)
  Sender: FDA-Public Use
  Company Number: CZ-ROCHE-1699243

PATIENT
  Age: 59 Year
  Sex: Female

DRUGS (3)
  1. PACLITAXEL. [Concomitant]
     Active Substance: PACLITAXEL
     Indication: OVARIAN CANCER
     Route: 042
     Dates: start: 20150709, end: 20151022
  2. CARBOPLATIN. [Concomitant]
     Active Substance: CARBOPLATIN
     Indication: OVARIAN CANCER
     Dosage: AUC 5,5
     Route: 042
     Dates: start: 20150709, end: 20151022
  3. AVASTIN [Suspect]
     Active Substance: BEVACIZUMAB
     Indication: OVARIAN CANCER STAGE III
     Dosage: 25 MG/ML
     Route: 042
     Dates: start: 20150730, end: 20151111

REACTIONS (3)
  - Respiratory tract infection [Unknown]
  - General physical health deterioration [Unknown]
  - Sudden death [Fatal]

NARRATIVE: CASE EVENT DATE: 20151206
